FAERS Safety Report 6213980-9 (Version None)
Quarter: 2009Q2

REPORT INFORMATION
  Report Type: 
  Country: None (occurrence: None)
  Receive Date: 20090602
  Receipt Date: 20090521
  Transmission Date: 20091009
  Serious: Yes (Other)
  Sender: FDA-Public Use
  Company Number: STI-2009-01090

PATIENT
  Age: 29 Year
  Sex: Female

DRUGS (2)
  1. BENZOYL PEROXIDE (UNSPECIFIED) [Suspect]
     Indication: ACNE
     Dosage: 1 DF (1 IN 1 DAYS) TOPICAL
     Route: 061
     Dates: start: 20090501, end: 20090503
  2. CITALOPRAM HYDROBROMIDE [Concomitant]

REACTIONS (6)
  - APPLICATION SITE REACTION [None]
  - EYELID OEDEMA [None]
  - HYPERSENSITIVITY [None]
  - PERIORBITAL OEDEMA [None]
  - RASH PUSTULAR [None]
  - SWELLING FACE [None]
